FAERS Safety Report 7532204-3 (Version None)
Quarter: 2011Q2

REPORT INFORMATION
  Report Type: 
  Country: None (occurrence: None)
  Receive Date: 20110608
  Receipt Date: 20110524
  Transmission Date: 20111010
  Serious: Yes (Hospitalization)
  Sender: FDA-Public Use
  Company Number: US-JNJFOC-20110600150

PATIENT
  Sex: Female

DRUGS (12)
  1. AMITRIPTYLINE HCL [Concomitant]
  2. VITAMIN D [Concomitant]
  3. ZOFRAN [Concomitant]
  4. TOPAMAX [Concomitant]
  5. PREVACID [Concomitant]
  6. REMICADE [Suspect]
     Route: 042
     Dates: start: 20091210, end: 20100113
  7. AZATHIOPRINE [Concomitant]
  8. REMICADE [Suspect]
     Indication: INFLAMMATORY BOWEL DISEASE
     Route: 042
     Dates: start: 20091125
  9. MIRALAX [Concomitant]
  10. TRAMADOL HCL [Concomitant]
  11. ZOLPIDEM [Concomitant]
  12. ATIVAN [Concomitant]

REACTIONS (1)
  - CROHN'S DISEASE [None]
